FAERS Safety Report 9350477 (Version 1)
Quarter: 2013Q2

REPORT INFORMATION
  Report Type: Spontaneous
  Country: US (occurrence: US)
  Receive Date: 20130617
  Receipt Date: 20130617
  Transmission Date: 20140414
  Serious: No
  Sender: FDA-Public Use
  Company Number: US-ASTRAZENECA-2013SE40655

PATIENT
  Age: 64 Year
  Sex: Female
  Weight: 79.4 kg

DRUGS (5)
  1. PULMICORT FLEXHALER [Suspect]
     Indication: COUGH
     Route: 055
     Dates: start: 201304
  2. OMEPRAZOLE [Suspect]
     Route: 048
  3. OTC VITAMINS [Concomitant]
  4. ALBUTEROL [Concomitant]
  5. ANTIBIOTICS [Concomitant]

REACTIONS (5)
  - Cough [Unknown]
  - Bronchitis [Unknown]
  - Expired drug administered [Unknown]
  - Intentional drug misuse [Unknown]
  - Drug ineffective [Unknown]
